FAERS Safety Report 7406506-5 (Version None)
Quarter: 2011Q2

REPORT INFORMATION
  Report Type: 
  Country: None (occurrence: None)
  Receive Date: 20110406
  Receipt Date: 20110406
  Transmission Date: 20111010
  Serious: Yes (Other)
  Sender: FDA-Public Use
  Company Number: None

PATIENT
  Age: 61 Year
  Sex: Female
  Weight: 83.9154 kg

DRUGS (10)
  1. CENTRUM ULTRA FOR SR. WOMEN [Concomitant]
  2. LOVAZA [Concomitant]
  3. CYCLOBENZAPRINE [Suspect]
     Indication: ARTHRALGIA
     Dosage: 19 NG EV 8 HRS AS NEEDED
     Dates: start: 20110301, end: 20110308
  4. CYCLOBENZAPRINE [Suspect]
     Indication: PAIN
     Dosage: 19 NG EV 8 HRS AS NEEDED
     Dates: start: 20110301, end: 20110308
  5. CYCLOBENZAPRINE [Suspect]
     Indication: MYALGIA
     Dosage: 19 NG EV 8 HRS AS NEEDED
     Dates: start: 20110301, end: 20110308
  6. CYCLOBENZAPRINE [Suspect]
     Indication: MUSCLE SPASMS
     Dosage: 19 NG EV 8 HRS AS NEEDED
     Dates: start: 20110301, end: 20110308
  7. ACTOS [Concomitant]
  8. GLIPIZIDE [Concomitant]
  9. CALCIUM - 600MG - +D [Concomitant]
  10. CINNAMON [Concomitant]

REACTIONS (4)
  - DRUG INTERACTION [None]
  - DISCOMFORT [None]
  - SCAR [None]
  - ROSACEA [None]
